FAERS Safety Report 8898852 (Version 1)
Quarter: 2012Q4

REPORT INFORMATION
  Report Type: 
  Country: GB (occurrence: GB)
  Receive Date: 20121109
  Receipt Date: 20121109
  Transmission Date: 20130627
  Serious: Yes (Other)
  Sender: FDA-Public Use
  Company Number: GB-UCBSA-070360

PATIENT
  Age: 60 Year
  Sex: Female
  Weight: 70 kg

DRUGS (2)
  1. VIMPAT [Suspect]
     Indication: EPILEPSY
     Dosage: DOSE: 50 MG
     Route: 048
     Dates: start: 201207, end: 201207
  2. PHENYTOIN [Concomitant]
     Dosage: UNKNOWN DOSE

REACTIONS (2)
  - Dermatitis allergic [Recovered/Resolved]
  - Dermatitis bullous [Recovered/Resolved]
